FAERS Safety Report 9791233 (Version 1)
Quarter: 2014Q1

REPORT INFORMATION
  Report Type: Spontaneous
  Country: US (occurrence: US)
  Receive Date: 20140101
  Receipt Date: 20140101
  Transmission Date: 20141002
  Serious: Yes (Other)
  Sender: FDA-Public Use
  Company Number: US-AMGEN-USASP2013090962

PATIENT
  Age: 55 Year
  Sex: Female

DRUGS (4)
  1. PROCRIT [Suspect]
     Indication: PRODUCT USED FOR UNKNOWN INDICATION
     Dosage: 40000 UNIT, UNK
     Route: 058
  2. NORMAL SALINE [Concomitant]
     Dosage: 1000 UNK, UNK
     Route: 042
  3. ALOXI [Concomitant]
     Dosage: 0.25 MG, UNK
     Route: 042
  4. DECADRON                           /00016001/ [Concomitant]
     Dosage: 10 MG, UNK
     Route: 042

REACTIONS (8)
  - Vomiting [Unknown]
  - Dizziness [Unknown]
  - Nausea [Unknown]
  - Fatigue [Unknown]
  - Asthenia [Unknown]
  - Dyspepsia [Unknown]
  - Dyspnoea [Recovered/Resolved]
  - Drug ineffective [Unknown]
